FAERS Safety Report 16663739 (Version 3)
Quarter: 2019Q4

REPORT INFORMATION
  Report Type: Spontaneous
  Country: US (occurrence: US)
  Receive Date: 20190802
  Receipt Date: 20191219
  Transmission Date: 20200122
  Serious: Yes (Other)
  Sender: FDA-Public Use
  Company Number: US-ASTRAZENECA-2019SF08331

PATIENT
  Age: 18714 Day
  Sex: Female

DRUGS (102)
  1. NEXIUM [Suspect]
     Active Substance: ESOMEPRAZOLE MAGNESIUM
     Indication: GASTROOESOPHAGEAL REFLUX DISEASE
     Route: 048
     Dates: start: 20110415
  2. NEXIUM [Suspect]
     Active Substance: ESOMEPRAZOLE MAGNESIUM
     Indication: GASTROOESOPHAGEAL REFLUX DISEASE
     Route: 048
     Dates: start: 20061024
  3. PRILOSEC OTC [Suspect]
     Active Substance: OMEPRAZOLE MAGNESIUM
     Indication: GASTROOESOPHAGEAL REFLUX DISEASE
     Route: 048
     Dates: start: 2001, end: 2019
  4. PROTONIX [Suspect]
     Active Substance: PANTOPRAZOLE SODIUM
     Indication: GASTROOESOPHAGEAL REFLUX DISEASE
     Route: 065
     Dates: start: 2018
  5. PROTONIX [Suspect]
     Active Substance: PANTOPRAZOLE SODIUM
     Indication: GASTROOESOPHAGEAL REFLUX DISEASE
     Route: 065
     Dates: start: 20080205
  6. AMLODIPINE BESYLATE. [Concomitant]
     Active Substance: AMLODIPINE BESYLATE
     Route: 065
     Dates: start: 2019
  7. TOPIRAMATE. [Concomitant]
     Active Substance: TOPIRAMATE
     Route: 065
  8. LIDODERM [Concomitant]
     Active Substance: LIDOCAINE
     Route: 065
  9. PREDNISOLONE. [Concomitant]
     Active Substance: PREDNISOLONE
  10. SUCRALFATE. [Concomitant]
     Active Substance: SUCRALFATE
  11. ZOLOFT [Concomitant]
     Active Substance: SERTRALINE HYDROCHLORIDE
  12. NEXIUM [Suspect]
     Active Substance: ESOMEPRAZOLE MAGNESIUM
     Indication: GASTROOESOPHAGEAL REFLUX DISEASE
     Route: 048
     Dates: start: 20070613
  13. PROTONIX [Suspect]
     Active Substance: PANTOPRAZOLE SODIUM
     Indication: GASTROOESOPHAGEAL REFLUX DISEASE
     Route: 065
     Dates: start: 20180928
  14. OXYBUTYNIN. [Concomitant]
     Active Substance: OXYBUTYNIN CHLORIDE
     Route: 065
  15. SYMBICORT [Concomitant]
     Active Substance: BUDESONIDE\FORMOTEROL FUMARATE DIHYDRATE
     Route: 065
  16. METRONIDAZOLE. [Concomitant]
     Active Substance: METRONIDAZOLE
     Route: 065
  17. ONDANSETRON [Concomitant]
     Active Substance: ONDANSETRON
     Route: 065
  18. KETOCONAZOLE. [Concomitant]
     Active Substance: KETOCONAZOLE
     Route: 065
  19. DESONIDE. [Concomitant]
     Active Substance: DESONIDE
     Route: 065
  20. TRIAMCINOLONE [Concomitant]
     Active Substance: TRIAMCINOLONE
  21. SYNTHROID [Concomitant]
     Active Substance: LEVOTHYROXINE SODIUM
  22. RESPERIDONE [Concomitant]
     Active Substance: RISPERIDONE
  23. MECLIZINE [Concomitant]
     Active Substance: MECLIZINE HYDROCHLORIDE
  24. LEXAPRO [Concomitant]
     Active Substance: ESCITALOPRAM OXALATE
  25. SINGULAIR [Concomitant]
     Active Substance: MONTELUKAST SODIUM
  26. PRILOSEC [Suspect]
     Active Substance: OMEPRAZOLE MAGNESIUM
     Indication: GASTROOESOPHAGEAL REFLUX DISEASE
     Route: 048
     Dates: start: 2001, end: 2019
  27. ATORVASTATIN [Concomitant]
     Active Substance: ATORVASTATIN
     Route: 065
     Dates: start: 2019
  28. ROSUVASTATIN CALCIUM. [Concomitant]
     Active Substance: ROSUVASTATIN CALCIUM
     Route: 065
  29. BENZONATATE. [Concomitant]
     Active Substance: BENZONATATE
     Route: 065
  30. SUMATRIPTAN. [Concomitant]
     Active Substance: SUMATRIPTAN
     Route: 065
  31. LEVOTHYROXINE. [Concomitant]
     Active Substance: LEVOTHYROXINE
  32. RALOXIFENE. [Concomitant]
     Active Substance: RALOXIFENE
  33. LORAZEPAM. [Concomitant]
     Active Substance: LORAZEPAM
  34. RELPAX [Concomitant]
     Active Substance: ELETRIPTAN HYDROBROMIDE
  35. ZOCOR [Concomitant]
     Active Substance: SIMVASTATIN
  36. DITROPAN [Concomitant]
     Active Substance: OXYBUTYNIN CHLORIDE
  37. ATIVAN [Concomitant]
     Active Substance: LORAZEPAM
  38. DEXAMETHASONE. [Concomitant]
     Active Substance: DEXAMETHASONE
  39. MACROBID [Concomitant]
     Active Substance: NITROFURANTOIN\NITROFURANTOIN MONOHYDRATE
  40. PRILOSEC [Suspect]
     Active Substance: OMEPRAZOLE MAGNESIUM
     Indication: GASTROOESOPHAGEAL REFLUX DISEASE
     Route: 048
     Dates: start: 2001, end: 2002
  41. PROTONIX [Suspect]
     Active Substance: PANTOPRAZOLE SODIUM
     Indication: GASTROOESOPHAGEAL REFLUX DISEASE
     Route: 065
     Dates: start: 2001, end: 2019
  42. PROTONIX [Suspect]
     Active Substance: PANTOPRAZOLE SODIUM
     Indication: GASTROOESOPHAGEAL REFLUX DISEASE
     Dosage: GENERIC
     Route: 065
     Dates: start: 2017, end: 2019
  43. VOLTAREN [Concomitant]
     Active Substance: DICLOFENAC SODIUM
     Route: 065
  44. DILTIAZEM. [Concomitant]
     Active Substance: DILTIAZEM
  45. GABAPENTIN. [Concomitant]
     Active Substance: GABAPENTIN
  46. FLUCONAZOLE. [Concomitant]
     Active Substance: FLUCONAZOLE
  47. PEPTO-BISMOL [Concomitant]
     Active Substance: BISMUTH SUBSALICYLATE
  48. LYRICA [Concomitant]
     Active Substance: PREGABALIN
  49. LAMOTRIGINE. [Concomitant]
     Active Substance: LAMOTRIGINE
  50. KENALOG [Concomitant]
     Active Substance: TRIAMCINOLONE ACETONIDE
  51. NEXIUM [Suspect]
     Active Substance: ESOMEPRAZOLE MAGNESIUM
     Indication: GASTROOESOPHAGEAL REFLUX DISEASE
     Route: 048
     Dates: start: 2003, end: 2015
  52. LISINOPRIL. [Concomitant]
     Active Substance: LISINOPRIL
     Indication: HYPERTENSION
     Route: 065
     Dates: start: 2017
  53. MONTELUKAST [Concomitant]
     Active Substance: MONTELUKAST SODIUM
     Indication: MULTIPLE ALLERGIES
     Route: 065
     Dates: start: 2017
  54. AZELASTINE. [Concomitant]
     Active Substance: AZELASTINE HYDROCHLORIDE
     Route: 065
  55. CELEBREX [Concomitant]
     Active Substance: CELECOXIB
  56. HYDROCODONE/ACETAMINOPHEN [Concomitant]
     Active Substance: ACETAMINOPHEN\HYDROCODONE
  57. PREDNISONE. [Concomitant]
     Active Substance: PREDNISONE
  58. ACETAMINOPHEN. [Concomitant]
     Active Substance: ACETAMINOPHEN
  59. ESTROGENS [Concomitant]
     Active Substance: ESTROGENS
  60. ROPIVACAINE. [Concomitant]
     Active Substance: ROPIVACAINE HYDROCHLORIDE
  61. NASONEX [Concomitant]
     Active Substance: MOMETASONE FUROATE
  62. FENTANYL. [Concomitant]
     Active Substance: FENTANYL
  63. NEXIUM [Suspect]
     Active Substance: ESOMEPRAZOLE MAGNESIUM
     Indication: GASTROOESOPHAGEAL REFLUX DISEASE
     Route: 048
     Dates: start: 2001, end: 2019
  64. ACETAMINOPHEN CODINE [Concomitant]
     Indication: PAIN
     Route: 065
     Dates: start: 1998
  65. ZANTAC [Concomitant]
     Active Substance: RANITIDINE HYDROCHLORIDE
     Route: 065
     Dates: start: 1992, end: 2016
  66. ATROVENT [Concomitant]
     Active Substance: IPRATROPIUM BROMIDE
     Route: 065
  67. NYSTATIN. [Concomitant]
     Active Substance: NYSTATIN
     Route: 065
  68. CHLOROQUINE. [Concomitant]
     Active Substance: CHLOROQUINE
     Route: 065
  69. VITAMIN D2 [Concomitant]
     Active Substance: ERGOCALCIFEROL
     Route: 065
  70. FLONASE [Concomitant]
     Active Substance: FLUTICASONE PROPIONATE
  71. CIPROFLOXACIN. [Concomitant]
     Active Substance: CIPROFLOXACIN
  72. ALENDRONATE SODIUM. [Concomitant]
     Active Substance: ALENDRONATE SODIUM
  73. ZYRTEC [Concomitant]
     Active Substance: CETIRIZINE HYDROCHLORIDE
  74. IMITREX [Concomitant]
     Active Substance: SUMATRIPTAN SUCCINATE
  75. PRILOSEC OTC [Suspect]
     Active Substance: OMEPRAZOLE MAGNESIUM
     Indication: GASTROOESOPHAGEAL REFLUX DISEASE
     Route: 048
  76. LEVOFLOXACIN. [Concomitant]
     Active Substance: LEVOFLOXACIN
     Route: 065
  77. SODIUM BICARBONATE. [Concomitant]
     Active Substance: SODIUM BICARBONATE
     Route: 065
  78. HYDROXYZINE HCL [Concomitant]
     Active Substance: HYDROXYZINE HYDROCHLORIDE
     Route: 065
  79. CETRIZINE [Concomitant]
     Active Substance: CETIRIZINE HYDROCHLORIDE
     Route: 065
  80. BACLOFEN. [Concomitant]
     Active Substance: BACLOFEN
  81. ALBUTEROL. [Concomitant]
     Active Substance: ALBUTEROL
  82. AMOXICILLINE [Concomitant]
     Active Substance: AMOXICILLIN
  83. TOPAMAX [Concomitant]
     Active Substance: TOPIRAMATE
  84. MAXALT [Concomitant]
     Active Substance: RIZATRIPTAN BENZOATE
  85. MIDAZOLAM [Concomitant]
     Active Substance: MIDAZOLAM HYDROCHLORIDE
  86. KAOPECTATE REGULAR STRENGTH CHERRY FLAVOR [Concomitant]
     Active Substance: BISMUTH SUBSALICYLATE
  87. AZITHROMYCIN ANHYDROUS. [Concomitant]
     Active Substance: AZITHROMYCIN ANHYDROUS
     Route: 065
  88. SULFAMETHOXAZOLE [Concomitant]
     Active Substance: SULFAMETHOXAZOLE
     Route: 065
  89. PIOGLITAZONE. [Concomitant]
     Active Substance: PIOGLITAZONE
     Route: 065
  90. SPIRIVA [Concomitant]
     Active Substance: TIOTROPIUM BROMIDE MONOHYDRATE
     Route: 065
  91. IPRATROPIUM BROMIDE. [Concomitant]
     Active Substance: IPRATROPIUM BROMIDE
  92. TRAZODONE [Concomitant]
     Active Substance: TRAZODONE HYDROCHLORIDE
  93. CITALOPRAM [Concomitant]
     Active Substance: CITALOPRAM HYDROBROMIDE
  94. ESCITALOPRAM [Concomitant]
     Active Substance: ESCITALOPRAM OXALATE
  95. CYCLOBENZAPRINE. [Concomitant]
     Active Substance: CYCLOBENZAPRINE
  96. PRAVASTATIN. [Concomitant]
     Active Substance: PRAVASTATIN
  97. DICYCLOMINE [Concomitant]
     Active Substance: DICYCLOMINE HYDROCHLORIDE
  98. TAGAMET HB [Concomitant]
     Active Substance: CIMETIDINE
  99. XANAX [Concomitant]
     Active Substance: ALPRAZOLAM
  100. ALLOPURINOL. [Concomitant]
     Active Substance: ALLOPURINOL
  101. ADVAIR HFA [Concomitant]
     Active Substance: FLUTICASONE PROPIONATE\SALMETEROL XINAFOATE
  102. PYRIDIUM [Concomitant]
     Active Substance: PHENAZOPYRIDINE

REACTIONS (5)
  - Chronic kidney disease [Not Recovered/Not Resolved]
  - Acute kidney injury [Not Recovered/Not Resolved]
  - End stage renal disease [Not Recovered/Not Resolved]
  - Renal failure [Unknown]
  - Tubulointerstitial nephritis [Not Recovered/Not Resolved]

NARRATIVE: CASE EVENT DATE: 20070831
